FAERS Safety Report 12070264 (Version 3)
Quarter: 2016Q1

REPORT INFORMATION
  Report Type: Spontaneous
  Country: IT (occurrence: IT)
  Receive Date: 20160211
  Receipt Date: 20160226
  Transmission Date: 20160526
  Serious: Yes (Hospitalization)
  Sender: FDA-Public Use
  Company Number: IT-PFIZER INC-2016080076

PATIENT
  Age: 77 Year
  Sex: Female

DRUGS (12)
  1. TRIAZOLAM. [Suspect]
     Active Substance: TRIAZOLAM
     Dosage: UNK, DAILY
     Route: 048
  2. COUMADIN [Suspect]
     Active Substance: WARFARIN SODIUM
     Indication: ATRIAL FIBRILLATION
     Dosage: UNK, AS NEEDED
     Route: 048
  3. PANTORC [Concomitant]
     Active Substance: PANTOPRAZOLE SODIUM
     Route: 048
  4. NORVASC [Concomitant]
     Active Substance: AMLODIPINE BESYLATE
     Route: 048
  5. CONGESCOR [Concomitant]
     Active Substance: BISOPROLOL
     Route: 048
  6. CORDARONE [Concomitant]
     Active Substance: AMIODARONE HYDROCHLORIDE
     Route: 048
  7. RAPAMUNE [Concomitant]
     Active Substance: SIROLIMUS
     Route: 048
  8. TORVAST [Concomitant]
     Active Substance: ATORVASTATIN
     Route: 048
  9. CATAPRESAN TTS [Concomitant]
     Active Substance: CLONIDINE
     Route: 062
  10. DIDROGYL [Concomitant]
     Route: 048
  11. LORTAAN [Concomitant]
     Active Substance: LOSARTAN POTASSIUM
     Route: 048
  12. CARDURA [Concomitant]
     Active Substance: DOXAZOSIN MESYLATE
     Route: 048

REACTIONS (3)
  - Balance disorder [Recovering/Resolving]
  - International normalised ratio increased [Recovering/Resolving]
  - General physical health deterioration [Recovering/Resolving]

NARRATIVE: CASE EVENT DATE: 201512
